FAERS Safety Report 5977526-2 (Version None)
Quarter: 2008Q4

REPORT INFORMATION
  Report Type: 
  Country: None (occurrence: None)
  Receive Date: 20081201
  Receipt Date: 20081201
  Transmission Date: 20090506
  Serious: Yes (Disabling, Other)
  Sender: FDA-Public Use
  Company Number: None

PATIENT
  Age: 56 Year
  Sex: Female
  Weight: 81.6475 kg

DRUGS (3)
  1. QVAR 40 [Suspect]
     Indication: ASTHMA
     Dosage: 40MCG 2XDAY INHALED PO
     Route: 048
     Dates: start: 20081101, end: 20081120
  2. ALBUTEROL [Suspect]
     Indication: ASTHMA
     Dosage: AS NEEDED PO
     Route: 048
     Dates: start: 20081120, end: 20081120
  3. ... [Concomitant]

REACTIONS (8)
  - ARTHRALGIA [None]
  - DISTURBANCE IN ATTENTION [None]
  - GAIT DISTURBANCE [None]
  - JOINT SWELLING [None]
  - MALAISE [None]
  - OEDEMA PERIPHERAL [None]
  - PAIN IN EXTREMITY [None]
  - REACTION TO DRUG EXCIPIENTS [None]
